FAERS Safety Report 11730258 (Version 1)
Quarter: 2015Q4

REPORT INFORMATION
  Report Type: Spontaneous
  Country: US (occurrence: US)
  Receive Date: 20151110
  Receipt Date: 20151110
  Transmission Date: 20160304
  Serious: No
  Sender: FDA-Public Use
  Company Number: US-ELI_LILLY_AND_COMPANY-US201201006500

PATIENT
  Age: 59 Year
  Sex: Female

DRUGS (1)
  1. FORTEO [Suspect]
     Active Substance: TERIPARATIDE
     Indication: OSTEOPOROSIS
     Dosage: 20 UG, QD
     Dates: start: 20120112

REACTIONS (8)
  - Cardiac flutter [Unknown]
  - Extrasystoles [Unknown]
  - Injection site pain [Recovered/Resolved]
  - Heart rate irregular [Unknown]
  - Stress [Unknown]
  - Injection site erythema [Unknown]
  - Drug dose omission [Recovered/Resolved]
  - Injection site pain [Unknown]

NARRATIVE: CASE EVENT DATE: 20120114
